FAERS Safety Report 13655899 (Version 1)
Quarter: 2017Q2

REPORT INFORMATION
  Report Type: Spontaneous
  Country: ES (occurrence: ES)
  Receive Date: 20170615
  Receipt Date: 20170615
  Transmission Date: 20170830
  Serious: Yes (Death, Other)
  Sender: FDA-Public Use
  Company Number: ES-GILEAD-2017-0273147

PATIENT

DRUGS (1)
  1. ZYDELIG [Suspect]
     Active Substance: IDELALISIB
     Indication: PROLYMPHOCYTIC LEUKAEMIA
     Route: 065

REACTIONS (2)
  - Disease progression [Fatal]
  - Off label use [Fatal]
